FAERS Safety Report 8717165 (Version 5)
Quarter: 2012Q4

REPORT INFORMATION
  Report Type: 
  Country: TW (occurrence: TW)
  Receive Date: 20120810
  Receipt Date: 20121022
  Transmission Date: 20130627
  Serious: Yes (Hospitalization, Disabling)
  Sender: FDA-Public Use
  Company Number: PHHY2012TW068692

PATIENT
  Age: 59 Year
  Sex: Female

DRUGS (7)
  1. ACLASTA [Suspect]
     Indication: OSTEOPOROSIS POSTMENOPAUSAL
     Dosage: 5 mg per 100 ml (100 cc)
     Route: 042
     Dates: start: 20120716, end: 20120716
  2. VOLTAREN [Suspect]
     Indication: INFLUENZA LIKE ILLNESS
     Dosage: UNK UKN, UNK
     Route: 048
  3. STROCAIN [Suspect]
     Indication: PEPTIC ULCER
     Dosage: UNK UKN, UNK
     Route: 048
     Dates: start: 20120716
  4. CINNARIZINE [Concomitant]
     Dosage: 1 DF, BID
  5. XANAX [Concomitant]
     Indication: ANXIETY
     Dosage: 0.5 mg, BID (2 times per day)
     Route: 048
     Dates: start: 20120614
  6. TAPAL [Concomitant]
     Indication: CEREBROVASCULAR ACCIDENT
     Dosage: 50 mg, one time per day
     Route: 048
     Dates: start: 20120614
  7. GASTER [Concomitant]
     Indication: PEPTIC ULCER
     Dosage: 20 mg, QD (1 time per day)
     Route: 048
     Dates: start: 20120712

REACTIONS (12)
  - Inflammation [Unknown]
  - Deafness [Unknown]
  - Sudden hearing loss [Unknown]
  - Deafness neurosensory [Unknown]
  - Hearing impaired [Recovering/Resolving]
  - Visual impairment [Not Recovered/Not Resolved]
  - Tinnitus [Recovered/Resolved with Sequelae]
  - Pyrexia [Not Recovered/Not Resolved]
  - Headache [Not Recovered/Not Resolved]
  - Abdominal pain upper [Unknown]
  - Malaise [Unknown]
  - Vision blurred [Not Recovered/Not Resolved]
